FAERS Safety Report 18649047 (Version 2)
Quarter: 2021Q1

REPORT INFORMATION
  Report Type: Spontaneous
  Country: CN (occurrence: CN)
  Receive Date: 20201222
  Receipt Date: 20210106
  Transmission Date: 20210419
  Serious: Yes (Other)
  Sender: FDA-Public Use
  Company Number: CN-OTSUKA-2020_031793

PATIENT
  Age: 83 Year
  Sex: Female

DRUGS (1)
  1. SAMSCA [Suspect]
     Active Substance: TOLVAPTAN
     Indication: URINE OUTPUT DECREASED
     Dosage: 15 MG, QD
     Route: 048
     Dates: start: 20140814, end: 20140816

REACTIONS (5)
  - Blood sodium increased [Unknown]
  - Incorrect dose administered [Unknown]
  - Product use in unapproved indication [Unknown]
  - Epilepsy [Recovering/Resolving]
  - Rapid correction of hyponatraemia [Unknown]

NARRATIVE: CASE EVENT DATE: 20140814
